FAERS Safety Report 6227761-3 (Version None)
Quarter: 2009Q2

REPORT INFORMATION
  Report Type: 
  Country: None (occurrence: None)
  Receive Date: 20090612
  Receipt Date: 20090602
  Transmission Date: 20091009
  Serious: Yes (Other)
  Sender: FDA-Public Use
  Company Number: DE-PFIZER INC-2009200206

PATIENT
  Age: 73 Year

DRUGS (9)
  1. LYRICA [Suspect]
     Indication: GENERALISED ANXIETY DISORDER
     Dosage: UNK
     Route: 048
  2. LYRICA [Suspect]
     Indication: DEPRESSION
  3. LYRICA [Suspect]
     Indication: SOMATISATION DISORDER
  4. DULOXETINE [Concomitant]
     Indication: GENERALISED ANXIETY DISORDER
     Dosage: UNK
     Route: 048
     Dates: start: 20080401
  5. DULOXETINE [Concomitant]
     Indication: DEPRESSION
  6. DULOXETINE [Concomitant]
     Indication: SOMATISATION DISORDER
  7. RISPERIDONE [Concomitant]
     Indication: GENERALISED ANXIETY DISORDER
     Dosage: UNK
     Route: 048
     Dates: start: 20080401
  8. RISPERIDONE [Concomitant]
     Indication: DEPRESSION
  9. RISPERIDONE [Concomitant]
     Indication: SOMATISATION DISORDER

REACTIONS (2)
  - ATRIAL FIBRILLATION [None]
  - VENTRICULAR EXTRASYSTOLES [None]
